FAERS Safety Report 11675229 (Version 3)
Quarter: 2015Q4

REPORT INFORMATION
  Report Type: Report from Study
  Country: RO (occurrence: RO)
  Receive Date: 20151028
  Receipt Date: 20151118
  Transmission Date: 20160304
  Serious: Yes (Death, Hospitalization, Other)
  Sender: FDA-Public Use
  Company Number: RO-ABBVIE-15P-135-1487247-00

PATIENT
  Age: 72 Year
  Sex: Female

DRUGS (1)
  1. DUODOPA [Suspect]
     Active Substance: CARBIDOPA\LEVODOPA
     Indication: PARKINSON^S DISEASE
     Dosage: MD 5.5 ML, CR 3.2 ML, ED 1.5 ML
     Route: 050
     Dates: start: 20130701

REACTIONS (10)
  - Seizure [Fatal]
  - Seizure [Unknown]
  - Device kink [Unknown]
  - Seizure [Not Recovered/Not Resolved]
  - Paraneoplastic syndrome [Fatal]
  - Nausea [Unknown]
  - Cardiac arrest [Fatal]
  - Vomiting [Unknown]
  - Tumour marker increased [Unknown]
  - General physical health deterioration [Unknown]

NARRATIVE: CASE EVENT DATE: 20151014
